FAERS Safety Report 9712110 (Version 1)
Quarter: 2013Q4

REPORT INFORMATION
  Report Type: Spontaneous
  Country: JP (occurrence: JP)
  Receive Date: 20131126
  Receipt Date: 20131126
  Transmission Date: 20140711
  Serious: Yes (Other)
  Sender: FDA-Public Use
  Company Number: JP-B.I. PHARMACEUTICALS,INC./RIDGEFIELD-2013-BI-38616NB

PATIENT
  Age: 81 Year
  Sex: Male
  Weight: 85 kg

DRUGS (2)
  1. TRAZENTA [Suspect]
     Dosage: 5 MG
     Route: 048
     Dates: start: 20120821
  2. METGLUCO [Concomitant]
     Dosage: 750 MG
     Route: 048
     Dates: start: 20120821

REACTIONS (2)
  - Renal impairment [Unknown]
  - Nephrotic syndrome [Unknown]
